FAERS Safety Report 6643372-X (Version None)
Quarter: 2010Q1

REPORT INFORMATION
  Report Type: 
  Country: None (occurrence: None)
  Receive Date: 20100319
  Receipt Date: 20100317
  Transmission Date: 20100710
  Serious: Yes (Death, Hospitalization, Other)
  Sender: FDA-Public Use
  Company Number: PHHY2009MX16345

PATIENT
  Age: 81 Year
  Sex: Female

DRUGS (7)
  1. DIOVAN HCT [Suspect]
     Indication: HYPERTENSION
     Dosage: 1 TABLET (160/12.5 MG) PER DAY
     Dates: start: 20081010, end: 20100101
  2. PREXIGE [Suspect]
     Dosage: 1 TABLET (100 MG) PER DAY
     Route: 048
     Dates: start: 20081010
  3. VISKEN [Suspect]
     Indication: HYPERTENSION
     Dosage: 5 MG, UNK
     Route: 048
     Dates: start: 20081010
  4. DIOVAN [Suspect]
     Dates: start: 20100101
  5. CARBAMAZEPINE [Concomitant]
  6. PHENYTOIN [Concomitant]
     Dosage: UNK
     Dates: start: 20081010
  7. BIEGLUCON [Concomitant]

REACTIONS (12)
  - BLOOD GLUCOSE DECREASED [None]
  - BLOOD PRESSURE DECREASED [None]
  - BRAIN NEOPLASM [None]
  - CARDIO-RESPIRATORY ARREST [None]
  - CONDITION AGGRAVATED [None]
  - DIABETES MELLITUS [None]
  - FALL [None]
  - FATIGUE [None]
  - HIP FRACTURE [None]
  - SPEECH DISORDER [None]
  - SURGERY [None]
  - SYNCOPE [None]
